FAERS Safety Report 20976297 (Version 2)
Quarter: 2023Q4

REPORT INFORMATION
  Report Type: Spontaneous
  Country: CA (occurrence: CA)
  Receive Date: 20220617
  Receipt Date: 20231215
  Transmission Date: 20240110
  Serious: Yes (Other)
  Sender: FDA-Public Use
  Company Number: CA-PFIZER INC-202200796979

PATIENT
  Age: 77 Year
  Sex: Male
  Weight: 89.1 kg

DRUGS (3)
  1. LORBRENA [Suspect]
     Active Substance: LORLATINIB
     Indication: Non-small cell lung cancer metastatic
     Dosage: 100 MG, DAILY
     Route: 048
     Dates: start: 20220302
  2. LOPERAMIDE HYDROCHLORIDE [Concomitant]
     Active Substance: LOPERAMIDE HYDROCHLORIDE
     Dosage: 2 MG, AS NEEDED, QBM
     Route: 048
  3. METOCLOPRAMIDE HYDROCHLORIDE [Concomitant]
     Active Substance: METOCLOPRAMIDE HYDROCHLORIDE
     Dosage: 10 MG, AS NEEDED, Q4-6H
     Route: 048

REACTIONS (5)
  - Weight decreased [Unknown]
  - Body surface area decreased [Unknown]
  - Gait disturbance [Unknown]
  - Pain [Unknown]
  - Discomfort [Unknown]
